FAERS Safety Report 4869771-4 (Version None)
Quarter: 2005Q4

REPORT INFORMATION
  Report Type: 
  Country: None (occurrence: None)
  Receive Date: 20051227
  Receipt Date: 20051216
  Transmission Date: 20060501
  Serious: Yes (Other)
  Sender: FDA-Public Use
  Company Number: 2005170029

PATIENT
  Age: 18 Year
  Sex: Female
  Weight: 44.9061 kg

DRUGS (2)
  1. BENADRYL [Suspect]
     Indication: INTENTIONAL OVERDOSE
     Dosage: 24 TABS ONCE, ORAL
     Route: 048
     Dates: start: 20051211, end: 20051211
  2. DRUG UNSPECIFIED (DRUG UNSPECIFIED) [Concomitant]

REACTIONS (3)
  - GAIT DISTURBANCE [None]
  - INTENTIONAL OVERDOSE [None]
  - SOMNOLENCE [None]
